FAERS Safety Report 17989632 (Version 2)
Quarter: 2020Q3

REPORT INFORMATION
  Report Type: Spontaneous
  Country: US (occurrence: US)
  Receive Date: 20200707
  Receipt Date: 20200827
  Transmission Date: 20201103
  Serious: Yes (Death, Hospitalization, Other)
  Sender: FDA-Public Use
  Company Number: US-GILEAD-2020-0479491

PATIENT
  Age: 69 Year
  Sex: Male
  Weight: 107 kg

DRUGS (30)
  1. REMDESIVIR. [Suspect]
     Active Substance: REMDESIVIR
     Dosage: 100 UNK
     Route: 042
     Dates: start: 20200617, end: 20200622
  2. ENOXAPARIN [Concomitant]
     Active Substance: ENOXAPARIN
     Dosage: 90 MG
     Route: 058
     Dates: start: 20200620, end: 20200625
  3. NOREPINEPHRINE. [Concomitant]
     Active Substance: NOREPINEPHRINE
     Dosage: 8MG/250 ML DRIP
     Route: 042
     Dates: start: 20200622, end: 20200703
  4. ZINC SULFATE. [Concomitant]
     Active Substance: ZINC SULFATE
     Dosage: 220 MG
     Route: 048
     Dates: start: 20200616, end: 20200703
  5. ZINC SULFATE. [Concomitant]
     Active Substance: ZINC SULFATE
  6. PANTOPRAZOLE [Concomitant]
     Active Substance: PANTOPRAZOLE
     Dosage: 40 MG
     Route: 042
     Dates: start: 20200619, end: 20200703
  7. AZITHROMYCIN ANHYDROUS. [Concomitant]
     Active Substance: AZITHROMYCIN ANHYDROUS
     Dosage: 250 MG
     Route: 042
     Dates: start: 20200616, end: 20200623
  8. ALBUTEROL HFA [Concomitant]
     Active Substance: ALBUTEROL SULFATE
     Dosage: 2 PUFFS
     Route: 055
     Dates: start: 20200614, end: 20200703
  9. LABETALOL [Concomitant]
     Active Substance: LABETALOL\LABETALOL HYDROCHLORIDE
     Dosage: 10 MG
     Route: 042
     Dates: start: 20200622, end: 20200622
  10. DUONEB [Concomitant]
     Active Substance: ALBUTEROL SULFATE\IPRATROPIUM BROMIDE
     Dosage: 3 ML
     Route: 065
     Dates: start: 20200614, end: 20200703
  11. REMDESIVIR. [Suspect]
     Active Substance: REMDESIVIR
     Indication: COVID-19
     Dosage: 200 MG, QD
     Route: 042
     Dates: start: 20200616, end: 20200616
  12. AMIODARONE [Concomitant]
     Active Substance: AMIODARONE
     Dosage: UNK
     Route: 042
     Dates: start: 20200616, end: 20200616
  13. FENTANYL. [Concomitant]
     Active Substance: FENTANYL
     Dosage: 1000 MCG/50ML DRIP
     Route: 042
     Dates: start: 20200615, end: 20200703
  14. PROPOFOL. [Concomitant]
     Active Substance: PROPOFOL
     Dosage: 1000MG/100ML
     Route: 042
     Dates: start: 20200625, end: 20200703
  15. CHOLECALCIFEROL [Concomitant]
     Active Substance: CHOLECALCIFEROL
     Dosage: 1000 IU
     Route: 048
     Dates: start: 20200616, end: 20200703
  16. CEFTRIAXONE. [Concomitant]
     Active Substance: CEFTRIAXONE
     Dosage: 2 G
     Route: 042
     Dates: start: 20200614, end: 20200628
  17. FUROSEMIDE. [Concomitant]
     Active Substance: FUROSEMIDE
     Dosage: 20 MG
     Route: 042
     Dates: start: 20200619, end: 20200620
  18. NOVOLOG [Concomitant]
     Active Substance: INSULIN ASPART
     Dosage: PER SS
     Route: 058
     Dates: start: 20200614, end: 20200703
  19. MORPHINE [Concomitant]
     Active Substance: MORPHINE
     Dosage: 2 MG
     Route: 042
     Dates: start: 20200614, end: 20200628
  20. ASCORBIC ACID. [Concomitant]
     Active Substance: ASCORBIC ACID
     Dosage: 500 MG
     Route: 048
     Dates: start: 20200616, end: 20200703
  21. MIDAZOLAM. [Concomitant]
     Active Substance: MIDAZOLAM
     Dosage: 50 MG/250 ML DRIP
     Route: 042
     Dates: start: 20200615, end: 20200703
  22. SODIUM CHLORIDE 0.9% [Concomitant]
     Active Substance: SODIUM CHLORIDE
     Dosage: 50 ML/HR
     Route: 042
     Dates: start: 20200614, end: 20200703
  23. FAMOTIDINE. [Concomitant]
     Active Substance: FAMOTIDINE
     Dosage: 20 MG
     Route: 042
     Dates: start: 20200616, end: 20200618
  24. INSULIN REGULAR [INSULIN BOVINE] [Concomitant]
     Active Substance: INSULIN BEEF
     Dosage: 10?15 UNITS
     Route: 042
     Dates: start: 20200614, end: 20200623
  25. SODIUM BICARBONATE. [Concomitant]
     Active Substance: SODIUM BICARBONATE
     Dosage: 50 MEQ
     Route: 042
     Dates: start: 20200622, end: 20200622
  26. SUCCINYLCHOLINE [SUXAMETHONIUM] [Concomitant]
     Active Substance: SUCCINYLCHOLINE
     Dosage: 60 MG
     Route: 042
     Dates: start: 20200615, end: 20200615
  27. AMIODARONE [Concomitant]
     Active Substance: AMIODARONE
     Dosage: 200 MG
     Route: 048
     Dates: start: 20200617, end: 20200703
  28. DEXAMETHASONE. [Concomitant]
     Active Substance: DEXAMETHASONE
     Dosage: 200 MG
     Route: 048
     Dates: start: 20200616, end: 20200623
  29. TOCILIZUMAB. [Concomitant]
     Active Substance: TOCILIZUMAB
     Dosage: 400 MG
     Route: 042
     Dates: start: 20200621, end: 20200621
  30. LEVEMIR [Concomitant]
     Active Substance: INSULIN DETEMIR
     Dosage: 10?30 UNITS
     Route: 058
     Dates: start: 20200617, end: 20200703

REACTIONS (6)
  - Respiratory failure [Unknown]
  - Acute kidney injury [Unknown]
  - Hepatic enzyme increased [Fatal]
  - Blood creatinine increased [Fatal]
  - COVID-19 pneumonia [Unknown]
  - Cardio-respiratory arrest [Unknown]

NARRATIVE: CASE EVENT DATE: 20200623
